FAERS Safety Report 5420975-1 (Version None)
Quarter: 2007Q3

REPORT INFORMATION
  Report Type: 
  Country: None (occurrence: None)
  Receive Date: 20070821
  Receipt Date: 20061206
  Transmission Date: 20080115
  Serious: No
  Sender: FDA-Public Use
  Company Number: US-BRISTOL-MYERS SQUIBB COMPANY-13603907

PATIENT
  Sex: Female

DRUGS (1)
  1. EXELDERM [Suspect]
     Indication: FUNGUS CULTURE POSITIVE
     Dates: start: 20061001

REACTIONS (1)
  - DRUG INEFFECTIVE [None]
